FAERS Safety Report 24853140 (Version 2)
Quarter: 2025Q1

REPORT INFORMATION
  Report Type: Spontaneous
  Country: US (occurrence: US)
  Receive Date: 20250117
  Receipt Date: 20250325
  Transmission Date: 20250409
  Serious: No
  Sender: BIOGEN
  Company Number: US-BIOGENIDEC-2015BI151454

PATIENT
  Age: 63 Year
  Sex: Female

DRUGS (1)
  1. TECFIDERA [Suspect]
     Active Substance: DIMETHYL FUMARATE
     Indication: Multiple sclerosis
     Route: 050
     Dates: start: 20130501

REACTIONS (10)
  - Drug ineffective [Unknown]
  - Muscular weakness [Unknown]
  - Balance disorder [Unknown]
  - Fatigue [Unknown]
  - Urinary incontinence [Unknown]
  - Pollakiuria [Unknown]
  - Mobility decreased [Unknown]
  - Multiple allergies [Unknown]
  - White blood cell count decreased [Recovered/Resolved]
  - Hepatic enzyme increased [Not Recovered/Not Resolved]

NARRATIVE: CASE EVENT DATE: 20130501
